FAERS Safety Report 13207474 (Version 4)
Quarter: 2018Q2

REPORT INFORMATION
  Report Type: Spontaneous
  Country: US (occurrence: US)
  Receive Date: 20170209
  Receipt Date: 20180430
  Transmission Date: 20180711
  Serious: No
  Sender: FDA-Public Use
  Company Number: US-SA-2017SA004242

PATIENT
  Age: 64 Year
  Sex: Female

DRUGS (6)
  1. ALIROCUMAB PREFILLED PEN [Suspect]
     Active Substance: ALIROCUMAB
     Indication: BLOOD CHOLESTEROL
     Dates: start: 201605
  2. PRALUENT [Suspect]
     Active Substance: ALIROCUMAB
     Indication: BLOOD CHOLESTEROL
     Route: 058
     Dates: start: 201605
  3. PRALUENT [Suspect]
     Active Substance: ALIROCUMAB
     Indication: BLOOD CHOLESTEROL
     Route: 058
     Dates: start: 201605
  4. ALIROCUMAB PREFILLED PEN [Suspect]
     Active Substance: ALIROCUMAB
     Indication: BLOOD CHOLESTEROL
     Dates: start: 201605
  5. ALIROCUMAB PREFILLED PEN [Suspect]
     Active Substance: ALIROCUMAB
     Indication: BLOOD CHOLESTEROL
     Dates: start: 201605
  6. PRALUENT [Suspect]
     Active Substance: ALIROCUMAB
     Indication: BLOOD CHOLESTEROL
     Route: 058
     Dates: start: 201605

REACTIONS (9)
  - Blood bilirubin increased [Unknown]
  - Injection site bruising [Not Recovered/Not Resolved]
  - Blood alkaline phosphatase increased [Unknown]
  - Device use issue [Unknown]
  - Erythema [Not Recovered/Not Resolved]
  - Jaundice [Unknown]
  - Rash [Not Recovered/Not Resolved]
  - Pruritus generalised [Unknown]
  - Lethargy [Unknown]

NARRATIVE: CASE EVENT DATE: 2016
